FAERS Safety Report 6439058-7 (Version None)
Quarter: 2009Q4

REPORT INFORMATION
  Report Type: 
  Country: None (occurrence: None)
  Receive Date: 20091113
  Receipt Date: 20091110
  Transmission Date: 20100525
  Serious: Yes (Death)
  Sender: FDA-Public Use
  Company Number: JP-BRACCO-002871

PATIENT
  Age: 89 Year
  Sex: Male

DRUGS (4)
  1. IOPAMIDOL [Suspect]
     Indication: COMPUTERISED TOMOGRAM
     Route: 042
     Dates: start: 20091103, end: 20091103
  2. IOPAMIDOL [Suspect]
     Indication: EPULIS
     Route: 042
     Dates: start: 20091103, end: 20091103
  3. LACTEC [Concomitant]
     Route: 042
     Dates: start: 20091103, end: 20091103
  4. SOLU-CORTEF [Concomitant]
     Route: 065
     Dates: start: 20091103, end: 20091103

REACTIONS (3)
  - COUGH [None]
  - DEATH [None]
  - DEPRESSED LEVEL OF CONSCIOUSNESS [None]
